FAERS Safety Report 13044124 (Version 1)
Quarter: 2016Q4

REPORT INFORMATION
  Report Type: Spontaneous
  Country: US (occurrence: US)
  Receive Date: 20161219
  Receipt Date: 20161219
  Transmission Date: 20170207
  Serious: Yes (Hospitalization)
  Sender: FDA-Public Use
  Company Number: None

PATIENT
  Age: 53 Year
  Sex: Female
  Weight: 88.5 kg

DRUGS (1)
  1. PIOGLITAZONE. [Suspect]
     Active Substance: PIOGLITAZONE
     Indication: OEDEMA
     Dosage: MG PO
     Route: 048
     Dates: start: 20161112, end: 20161201

REACTIONS (2)
  - Syncope [None]
  - Oedema [None]

NARRATIVE: CASE EVENT DATE: 20161201
